FAERS Safety Report 20961371 (Version 4)
Quarter: 2023Q1

REPORT INFORMATION
  Report Type: Report from Study
  Country: CO (occurrence: CO)
  Receive Date: 20220615
  Receipt Date: 20230211
  Transmission Date: 20230417
  Serious: Yes (Hospitalization)
  Sender: FDA-Public Use
  Company Number: CO-NOVARTISPH-NVSC2022CO134953

PATIENT
  Age: 63 Year
  Sex: Male

DRUGS (1)
  1. COSENTYX [Suspect]
     Active Substance: SECUKINUMAB
     Indication: Ankylosing spondylitis
     Dosage: 150 MG, QMO
     Route: 058
     Dates: start: 20160915

REACTIONS (6)
  - Gastroenteritis [Recovered/Resolved]
  - Diarrhoea [Unknown]
  - Pain [Unknown]
  - Discomfort [Unknown]
  - Vomiting [Unknown]
  - Illness [Unknown]

NARRATIVE: CASE EVENT DATE: 20220602
